FAERS Safety Report 12992945 (Version 3)
Quarter: 2019Q3

REPORT INFORMATION
  Report Type: Spontaneous
  Country: US (occurrence: US)
  Receive Date: 20161202
  Receipt Date: 20190801
  Transmission Date: 20191004
  Serious: Yes (Death, Life-Threatening, Hospitalization, Other)
  Sender: FDA-Public Use
  Company Number: US-ACCORD-046102

PATIENT
  Age: 28 Year
  Sex: Female

DRUGS (3)
  1. FLUOROURACIL. [Suspect]
     Active Substance: FLUOROURACIL
     Indication: METASTATIC GASTRIC CANCER
     Dosage: 1ST CYCLE, FOLLOWED BY THE 2ND CYCLE AFTER 2 WEEKS
     Route: 040
  2. FOLINIC ACID [Suspect]
     Active Substance: LEUCOVORIN
     Indication: METASTATIC GASTRIC CANCER
     Dosage: 1ST CYCLE, FOLLOWED BY THE 2ND CYCLE AFTER 2 WEEKS
     Route: 042
  3. IRINOTECAN [Suspect]
     Active Substance: IRINOTECAN
     Indication: METASTATIC GASTRIC CANCER
     Dosage: 1ST CYCLE, FOLLOWED BY THE 2ND CYCLE AFTER 2 WEEKS
     Route: 042

REACTIONS (4)
  - Septic shock [Fatal]
  - Klebsiella bacteraemia [Fatal]
  - Posterior reversible encephalopathy syndrome [Unknown]
  - Off label use [Unknown]
